FAERS Safety Report 10041799 (Version 1)
Quarter: 2014Q1

REPORT INFORMATION
  Report Type: Spontaneous
  Country: US (occurrence: US)
  Receive Date: 20140327
  Receipt Date: 20140327
  Transmission Date: 20141002
  Serious: Yes (Other)
  Sender: FDA-Public Use
  Company Number: US-GLAXOSMITHKLINE-A1066852A

PATIENT
  Sex: Female

DRUGS (3)
  1. NICORETTE FRESHMINT 2MG [Suspect]
     Indication: SMOKING CESSATION THERAPY
     Route: 002
  2. NICODERM CQ [Suspect]
     Indication: SMOKING CESSATION THERAPY
     Route: 062
  3. BLOOD PRESSURE MEDICATION [Concomitant]

REACTIONS (3)
  - Cerebrovascular accident [Unknown]
  - Blood pressure increased [Unknown]
  - Drug administration error [Unknown]
